FAERS Safety Report 5779242-9 (Version None)
Quarter: 2008Q2

REPORT INFORMATION
  Report Type: 
  Country: None (occurrence: None)
  Receive Date: 20080619
  Receipt Date: 20080616
  Transmission Date: 20081010
  Serious: Yes (Other)
  Sender: FDA-Public Use
  Company Number: CA-ASTRAZENECA-2008UW12128

PATIENT
  Age: 55 Year
  Sex: Female

DRUGS (5)
  1. CRESTOR [Suspect]
     Indication: BLOOD CHOLESTEROL INCREASED
     Route: 048
     Dates: start: 20080301
  2. INSULIN [Concomitant]
  3. TRIAZIDE [Concomitant]
  4. ASPIRIN [Concomitant]
  5. ATACAND [Concomitant]

REACTIONS (2)
  - ABASIA [None]
  - MYALGIA [None]
